FAERS Safety Report 23074830 (Version 1)
Quarter: 2023Q4

REPORT INFORMATION
  Report Type: Report from Study
  Country: PE (occurrence: PE)
  Receive Date: 20231017
  Receipt Date: 20231017
  Transmission Date: 20240109
  Serious: Yes (Hospitalization, Other)
  Sender: FDA-Public Use
  Company Number: PE-UCBSA-2023049777

PATIENT
  Age: 53 Year
  Sex: Male
  Weight: 62 kg

DRUGS (1)
  1. CERTOLIZUMAB PEGOL [Suspect]
     Active Substance: CERTOLIZUMAB PEGOL
     Indication: Rheumatoid arthritis
     Dosage: 200 MILLIGRAM, EV 15 DAYS
     Route: 058
     Dates: start: 20211117

REACTIONS (2)
  - Hip fracture [Recovered/Resolved]
  - Hip surgery [Unknown]

NARRATIVE: CASE EVENT DATE: 20230914
